FAERS Safety Report 4502738-4 (Version None)
Quarter: 2004Q4

REPORT INFORMATION
  Report Type: 
  Country: None (occurrence: None)
  Receive Date: 20041116
  Receipt Date: 20000605
  Transmission Date: 20050328
  Serious: Yes (Hospitalization, Other)
  Sender: FDA-Public Use
  Company Number: US-MERCK-00060586

PATIENT
  Age: 72 Year
  Sex: Male

DRUGS (4)
  1. VIOXX [Suspect]
     Indication: SPINAL COLUMN STENOSIS
     Route: 048
     Dates: start: 20000501
  2. VIOXX [Suspect]
     Route: 048
     Dates: start: 20010801
  3. VIOXX [Suspect]
     Indication: ARTHRITIS
     Route: 048
     Dates: start: 20000501
  4. VIOXX [Suspect]
     Route: 048
     Dates: start: 20010801

REACTIONS (6)
  - ADVERSE EVENT [None]
  - BACK DISORDER [None]
  - BLOOD PRESSURE INCREASED [None]
  - CEREBROVASCULAR ACCIDENT [None]
  - SPINAL LAMINECTOMY [None]
  - STENT PLACEMENT [None]
